FAERS Safety Report 16425962 (Version 2)
Quarter: 2019Q3

REPORT INFORMATION
  Report Type: Spontaneous
  Country: US (occurrence: US)
  Receive Date: 20190613
  Receipt Date: 20190708
  Transmission Date: 20191004
  Serious: Yes (Hospitalization)
  Sender: FDA-Public Use
  Company Number: US-PFIZER INC-2019031521

PATIENT
  Age: 74 Year
  Sex: Female

DRUGS (3)
  1. PRIMATENE [Suspect]
     Active Substance: EPHEDRINE HYDROCHLORIDE\GUAIFENESIN
     Indication: ASTHMA
     Dosage: 1-2 TABLETS PER DAY OR TWICE A DAY AS NEEDED
     Dates: start: 201812, end: 201901
  2. COMBIVENT RESPIMAT [Concomitant]
     Active Substance: ALBUTEROL SULFATE\IPRATROPIUM BROMIDE
     Dosage: UNK UNK, AS NEEDED
  3. DULERA [Concomitant]
     Active Substance: FORMOTEROL FUMARATE DIHYDRATE\MOMETASONE FUROATE
     Dosage: 2 DF, 2X/DAY (2 PUFFS TWICE A DAY)

REACTIONS (3)
  - Pharyngeal disorder [Recovered/Resolved]
  - Aphonia [Recovered/Resolved]
  - Swelling [Recovered/Resolved]
